FAERS Safety Report 4340345-7 (Version None)
Quarter: 2004Q2

REPORT INFORMATION
  Report Type: 
  Country: None (occurrence: None)
  Receive Date: 20040405
  Receipt Date: 20040325
  Transmission Date: 20050107
  Serious: Yes (Hospitalization)
  Sender: FDA-Public Use
  Company Number: 2003-00765

PATIENT
  Age: 70 Year
  Sex: Male

DRUGS (2)
  1. IMMUCYST (BCG - IT (CONNAUGHT)) [Suspect]
     Indication: BLADDER CANCER
     Dosage: 1.0 DF
     Route: 050
     Dates: start: 20030120
  2. MITOMYCIN [Concomitant]

REACTIONS (5)
  - CYSTITIS [None]
  - DRUG INEFFECTIVE [None]
  - ORCHITIS [None]
  - SKIN DISORDER [None]
  - TUBERCULOSIS [None]
